FAERS Safety Report 6295940-5 (Version None)
Quarter: 2009Q3

REPORT INFORMATION
  Report Type: 
  Country: None (occurrence: None)
  Receive Date: 20090804
  Receipt Date: 20090724
  Transmission Date: 20100115
  Serious: Yes (Hospitalization, Other)
  Sender: FDA-Public Use
  Company Number: US-ELI_LILLY_AND_COMPANY-US200905003612

PATIENT
  Sex: Male
  Weight: 78.005 kg

DRUGS (4)
  1. GEMZAR [Suspect]
     Indication: PANCREATIC CARCINOMA
     Dosage: 750 MG/M2, OTHER; DAY 4 AND DAY 11
     Route: 042
     Dates: start: 20090219
  2. CAPECITABINE [Concomitant]
     Indication: PANCREATIC CARCINOMA
     Dosage: 750 MG/M2, UNK
     Route: 048
     Dates: start: 20090219, end: 20090226
  3. TAXOTERE [Concomitant]
     Indication: PANCREATIC CARCINOMA
     Dosage: 30 MG/M2, OTHER; DAY 4 AND DAY 11
     Route: 042
     Dates: start: 20090219
  4. PACLITAXEL [Concomitant]

REACTIONS (15)
  - ANAEMIA [None]
  - BRONCHITIS [None]
  - CONSTIPATION [None]
  - DEHYDRATION [None]
  - ENTEROCOLITIS [None]
  - HICCUPS [None]
  - LARYNGITIS [None]
  - MALIGNANT NEOPLASM PROGRESSION [None]
  - MOUTH ULCERATION [None]
  - MUCOSAL INFLAMMATION [None]
  - NEUTROPENIC SEPSIS [None]
  - PALPITATIONS [None]
  - STAPHYLOCOCCAL BACTERAEMIA [None]
  - WEIGHT INCREASED [None]
  - WHITE BLOOD CELL COUNT DECREASED [None]
